FAERS Safety Report 17203273 (Version 1)
Quarter: 2019Q4

REPORT INFORMATION
  Report Type: Spontaneous
  Country: CN (occurrence: CN)
  Receive Date: 20191226
  Receipt Date: 20191226
  Transmission Date: 20200122
  Serious: Yes (Other)
  Sender: FDA-Public Use
  Company Number: CN-PURDUE-GBR-2019-0073484

PATIENT
  Age: 79 Year
  Sex: Female

DRUGS (1)
  1. MS CONTIN [Suspect]
     Active Substance: MORPHINE SULFATE
     Indication: CANCER PAIN
     Dosage: 60 MG, BID
     Route: 048
     Dates: start: 20191018, end: 20191021

REACTIONS (4)
  - Cognitive disorder [Unknown]
  - Disorganised speech [Recovering/Resolving]
  - Snoring [Unknown]
  - Somnolence [Recovering/Resolving]

NARRATIVE: CASE EVENT DATE: 20191021
